FAERS Safety Report 7925938-X (Version None)
Quarter: 2011Q4

REPORT INFORMATION
  Report Type: 
  Country: None (occurrence: None)
  Receive Date: 20111118
  Receipt Date: 20110414
  Transmission Date: 20120403
  Serious: No
  Sender: FDA-Public Use
  Company Number: US-AMGEN-USASP2011019879

PATIENT
  Age: 52 Year
  Sex: Female

DRUGS (1)
  1. ENBREL [Suspect]
     Indication: RHEUMATOID ARTHRITIS
     Dosage: 50 MG, QWK
     Dates: start: 20101209

REACTIONS (12)
  - OEDEMA PERIPHERAL [None]
  - INJECTION SITE ERYTHEMA [None]
  - INJECTION SITE SWELLING [None]
  - VESTIBULAR DISORDER [None]
  - HEPATIC ENZYME INCREASED [None]
  - PAIN IN EXTREMITY [None]
  - RHEUMATOID ARTHRITIS [None]
  - ARTHRALGIA [None]
  - BREAKTHROUGH PAIN [None]
  - SINUSITIS [None]
  - JOINT SWELLING [None]
  - INJECTION SITE URTICARIA [None]
